FAERS Safety Report 10149775 (Version 1)
Quarter: 2014Q2

REPORT INFORMATION
  Report Type: Spontaneous
  Country: US (occurrence: None)
  Receive Date: 20140501
  Receipt Date: 20140501
  Transmission Date: 20141212
  Serious: Yes (Disabling)
  Sender: FDA-Public Use
  Company Number: None

PATIENT
  Age: 45 Year
  Sex: Female
  Weight: 86.18 kg

DRUGS (12)
  1. LEVEQUIN 750 MG. 1 DAY = 10 DAYS [Suspect]
     Indication: BRONCHITIS CHRONIC
     Route: 048
     Dates: start: 20070319, end: 20090122
  2. LEVEQUIN 750 MG. 1 DAY = 10 DAYS [Suspect]
     Indication: SINUSITIS
     Route: 048
     Dates: start: 20070319, end: 20090122
  3. LEVEQUIN 750 MG. 1 DAY = 10 DAYS [Suspect]
     Indication: RESPIRATORY TRACT INFECTION
     Route: 048
     Dates: start: 20070319, end: 20090122
  4. ALPRAZOLAMINE [Concomitant]
  5. ROXYCODONE [Concomitant]
  6. MS CONTIN [Concomitant]
  7. FLEXERIL [Concomitant]
  8. SYNTHROID [Concomitant]
  9. ALBUTEROL INHALER [Concomitant]
  10. NEXIUM [Concomitant]
  11. ZYRTEC-D [Concomitant]
  12. MULTI VITAMIN [Concomitant]

REACTIONS (10)
  - Weight decreased [None]
  - Fatigue [None]
  - Arthralgia [None]
  - Neck pain [None]
  - Musculoskeletal pain [None]
  - Nerve injury [None]
  - Tendon rupture [None]
  - Tendonitis [None]
  - Vaginal infection [None]
  - Depression [None]
